FAERS Safety Report 7760722-1 (Version None)
Quarter: 2011Q3

REPORT INFORMATION
  Report Type: 
  Country: None (occurrence: None)
  Receive Date: 20110919
  Receipt Date: 20110909
  Transmission Date: 20111222
  Serious: Yes (Hospitalization)
  Sender: FDA-Public Use
  Company Number: US-ASTRAZENECA-2011SE43417

PATIENT
  Age: 63 Year
  Sex: Female

DRUGS (2)
  1. MAXALT [Concomitant]
  2. ZOMIG [Suspect]
     Route: 048

REACTIONS (8)
  - ROAD TRAFFIC ACCIDENT [None]
  - DRUG DOSE OMISSION [None]
  - VOMITING [None]
  - NAUSEA [None]
  - HYPERTENSION [None]
  - MIGRAINE [None]
  - DEHYDRATION [None]
  - MALAISE [None]
